FAERS Safety Report 4726238-1 (Version None)
Quarter: 2005Q3

REPORT INFORMATION
  Report Type: 
  Country: None (occurrence: None)
  Receive Date: 20050725
  Receipt Date: 20050708
  Transmission Date: 20060218
  Serious: Yes (Hospitalization)
  Sender: FDA-Public Use
  Company Number: 200505915

PATIENT
  Age: 4 Month
  Sex: Female
  Weight: 6 kg

DRUGS (1)
  1. ALPHAGAN [Suspect]
     Indication: GLAUCOMA
     Dosage: 4 DROP ONCE PO
     Route: 048

REACTIONS (4)
  - ACCIDENTAL EXPOSURE [None]
  - HYPOTHERMIA [None]
  - SOMNOLENCE [None]
  - WRONG DRUG ADMINISTERED [None]
